FAERS Safety Report 5130115-4 (Version None)
Quarter: 2006Q4

REPORT INFORMATION
  Report Type: 
  Country: None (occurrence: None)
  Receive Date: 20061013
  Receipt Date: 20060926
  Transmission Date: 20070319
  Serious: Yes (Hospitalization)
  Sender: FDA-Public Use
  Company Number: GB200609006930

PATIENT
  Age: 76 Year
  Sex: Female

DRUGS (6)
  1. EVISTA [Suspect]
     Indication: OSTEOPOROSIS
     Dosage: 60 MG DAILY (1/D) ORAL
     Route: 048
     Dates: end: 20060806
  2. BECLOMETHASONE DIPROPIONATE [Concomitant]
  3. DOSULEPIN [Concomitant]
  4. LANSOPRAZOLE [Concomitant]
  5. ACETAMINOPHEN [Concomitant]
  6. SALBUTAMOL [Concomitant]

REACTIONS (4)
  - ALANINE AMINOTRANSFERASE INCREASED [None]
  - DIARRHOEA [None]
  - GAMMA-GLUTAMYLTRANSFERASE INCREASED [None]
  - VOMITING [None]
